FAERS Safety Report 12125454 (Version 2)
Quarter: 2016Q1

REPORT INFORMATION
  Report Type: Report from Study
  Country: IN (occurrence: IN)
  Receive Date: 20160229
  Receipt Date: 20160301
  Transmission Date: 20160526
  Serious: Yes (Death, Hospitalization)
  Sender: FDA-Public Use
  Company Number: IN-ROCHE-1644975

PATIENT
  Age: 44 Year
  Sex: Male

DRUGS (10)
  1. TACROLIMUS. [Concomitant]
     Active Substance: TACROLIMUS
     Dosage: 3MG IN MORNING AND 2MG IN EVENING ORALLY
     Route: 048
     Dates: start: 20150508
  2. SULFAMETHOXAZOLE/TRIMETHOPRIM [Concomitant]
     Active Substance: SULFAMETHOXAZOLE\TRIMETHOPRIM
     Route: 048
     Dates: start: 20150508
  3. PREDNISOLONE. [Concomitant]
     Active Substance: PREDNISOLONE
     Dosage: 15MG ORALLY ONCE A DAY
     Route: 048
     Dates: start: 20150508
  4. CLONIDINE. [Concomitant]
     Active Substance: CLONIDINE
     Dosage: HALF A TABLET ONCE A DAY
     Route: 065
     Dates: start: 20150508
  5. VITAMIN B12 [Concomitant]
     Active Substance: CYANOCOBALAMIN
     Route: 065
     Dates: start: 20150508
  6. INSULIN GLARGINE [Concomitant]
     Active Substance: INSULIN GLARGINE
     Route: 065
     Dates: start: 20150508
  7. PANTOPRAZOLE [Concomitant]
     Active Substance: PANTOPRAZOLE SODIUM
     Dosage: 40MG ORALLY TWO TIMES A DAY
     Route: 048
     Dates: start: 20150508
  8. VALGANCICLOVIR [Concomitant]
     Active Substance: VALGANCICLOVIR
     Dosage: 450MG ONCE A DAY
     Route: 065
     Dates: start: 20150508
  9. CLOTRIMAZOLE. [Concomitant]
     Active Substance: CLOTRIMAZOLE
     Route: 065
     Dates: start: 20150508
  10. CELLCEPT [Suspect]
     Active Substance: MYCOPHENOLATE MOFETIL\MYCOPHENOLATE MOFETIL HYDROCHLORIDE
     Indication: RENAL TRANSPLANT
     Dosage: 1000MG TABLETS TWO TIMES A DAY
     Route: 048
     Dates: start: 20150508, end: 201509

REACTIONS (4)
  - Death [Fatal]
  - Peripheral swelling [Not Recovered/Not Resolved]
  - Tuberculosis [Recovering/Resolving]
  - Pyrexia [Not Recovered/Not Resolved]

NARRATIVE: CASE EVENT DATE: 201509
